FAERS Safety Report 12986615 (Version 1)
Quarter: 2016Q4

REPORT INFORMATION
  Report Type: Spontaneous
  Country: US (occurrence: US)
  Receive Date: 20161129
  Receipt Date: 20161129
  Transmission Date: 20170207
  Serious: No
  Sender: FDA-Public Use
  Company Number: None

PATIENT
  Age: 67 Year
  Sex: Male
  Weight: 78.75 kg

DRUGS (2)
  1. ATHLETE^S FOOT LIQUID SPRAY WALGREENS [Suspect]
     Active Substance: TOLNAFTATE
     Indication: TINEA CRURIS
     Dosage: ?          QUANTITY:5.3 OUNCE(S);OTHER ROUTE:SPRAY?
  2. LEVOTHYROXINE. [Concomitant]
     Active Substance: LEVOTHYROXINE

REACTIONS (4)
  - Depression [None]
  - Mental disorder [None]
  - Activities of daily living impaired [None]
  - Feeling abnormal [None]

NARRATIVE: CASE EVENT DATE: 20161121
